FAERS Safety Report 5470085-2 (Version None)
Quarter: 2007Q3

REPORT INFORMATION
  Report Type: 
  Country: None (occurrence: None)
  Receive Date: 20070924
  Receipt Date: 20070912
  Transmission Date: 20080115
  Serious: Yes (Other)
  Sender: FDA-Public Use
  Company Number: US-JNJFOC-200709 02649

PATIENT
  Sex: Female

DRUGS (1)
  1. DACOGEN [Suspect]
     Indication: DRUG USE FOR UNKNOWN INDICATION
     Dosage: INTRAVENOUS
     Route: 042

REACTIONS (2)
  - LUNG INFILTRATION [None]
  - PULMONARY HAEMORRHAGE [None]
